FAERS Safety Report 8238808-7 (Version None)
Quarter: 2012Q1

REPORT INFORMATION
  Report Type: 
  Country: None (occurrence: None)
  Receive Date: 20120327
  Receipt Date: 20120319
  Transmission Date: 20120608
  Serious: Yes (Death)
  Sender: FDA-Public Use
  Company Number: US-ELI_LILLY_AND_COMPANY-US201110007899

PATIENT
  Sex: Male
  Weight: 65 kg

DRUGS (20)
  1. FORTEO [Suspect]
     Dosage: 20 UG, QD
     Route: 065
  2. CORTISONE ACETATE [Concomitant]
  3. PROSCAR [Concomitant]
  4. PLAQUENIL [Concomitant]
  5. M.V.I. [Concomitant]
  6. PREDNISONE TAB [Concomitant]
  7. LOPID [Concomitant]
  8. PRILOSEC [Concomitant]
  9. FLOMAX [Concomitant]
  10. ASPIRIN [Concomitant]
  11. CALCIUM CARBONATE [Concomitant]
  12. FORTEO [Suspect]
     Dosage: 20 UG, QD
     Route: 065
     Dates: start: 20111213
  13. HYDROCORTISONE [Concomitant]
  14. IRON [Concomitant]
  15. COZAAR [Concomitant]
  16. FORTEO [Suspect]
     Dosage: 20 UG, QD
     Route: 065
  17. FORTEO [Suspect]
     Indication: OSTEOPOROSIS
     Dosage: 20 UG, QD
     Route: 065
     Dates: start: 20111006
  18. EPOGEN [Concomitant]
  19. NORCO [Concomitant]
  20. VITAMIN D [Concomitant]

REACTIONS (6)
  - DEATH [None]
  - BACK PAIN [None]
  - MUSCLE SPASMS [None]
  - PAIN [None]
  - ABDOMINAL PAIN UPPER [None]
  - DIZZINESS [None]
